FAERS Safety Report 11307099 (Version 3)
Quarter: 2015Q3

REPORT INFORMATION
  Report Type: Spontaneous
  Country: US (occurrence: US)
  Receive Date: 20150723
  Receipt Date: 20150916
  Transmission Date: 20151125
  Serious: Yes (Other)
  Sender: FDA-Public Use
  Company Number: US-TEVA-580493USA

PATIENT
  Sex: Male

DRUGS (1)
  1. PROAIR HFA [Suspect]
     Active Substance: ALBUTEROL SULFATE
     Indication: CHRONIC OBSTRUCTIVE PULMONARY DISEASE
     Route: 055

REACTIONS (7)
  - Gait disturbance [Unknown]
  - Cardiac failure congestive [Unknown]
  - Hypoaesthesia [Unknown]
  - Pain [Unknown]
  - Chest pain [Unknown]
  - Arthropathy [Unknown]
  - Pain in extremity [Unknown]
